FAERS Safety Report 19585789 (Version 1)
Quarter: 2021Q3

REPORT INFORMATION
  Report Type: Spontaneous
  Country: NI (occurrence: NI)
  Receive Date: 20210720
  Receipt Date: 20210720
  Transmission Date: 20211014
  Serious: Yes (Death)
  Sender: FDA-Public Use
  Company Number: NI-PFIZER INC-2021893103

PATIENT
  Sex: Female

DRUGS (1)
  1. XELJANZ [Suspect]
     Active Substance: TOFACITINIB CITRATE
     Dosage: UNK

REACTIONS (4)
  - Bronchopulmonary aspergillosis [Fatal]
  - Systemic lupus erythematosus [Fatal]
  - Tuberculosis [Fatal]
  - COVID-19 [Fatal]
